FAERS Safety Report 12944555 (Version 1)
Quarter: 2016Q4

REPORT INFORMATION
  Report Type: Spontaneous
  Country: US (occurrence: US)
  Receive Date: 20161115
  Receipt Date: 20161115
  Transmission Date: 20170207
  Serious: Yes (Hospitalization)
  Sender: FDA-Public Use
  Company Number: None

PATIENT
  Age: 59 Year
  Sex: Male
  Weight: 121.9 kg

DRUGS (1)
  1. TAMSULOSIN [Suspect]
     Active Substance: TAMSULOSIN
     Indication: PROSTATITIS
     Dosage: ?          OTHER FREQUENCY:BEDTIME;?
     Route: 048
     Dates: start: 20161114

REACTIONS (4)
  - Dizziness [None]
  - Loss of consciousness [None]
  - Visual impairment [None]
  - Hyperhidrosis [None]

NARRATIVE: CASE EVENT DATE: 20161115
